FAERS Safety Report 16356595 (Version 1)
Quarter: 2019Q2

REPORT INFORMATION
  Report Type: Spontaneous
  Country: GB (occurrence: GB)
  Receive Date: 20190527
  Receipt Date: 20190527
  Transmission Date: 20190711
  Serious: Yes (Other)
  Sender: FDA-Public Use
  Company Number: GB-SA-2019SA141690

PATIENT
  Age: 80 Year
  Sex: Female
  Weight: 83 kg

DRUGS (16)
  1. CLENIL MODULITE [Concomitant]
     Active Substance: BECLOMETHASONE DIPROPIONATE
     Dosage: 4 DF QD
     Dates: start: 20181213
  2. ISOSORBIDE DINITRATE. [Concomitant]
     Active Substance: ISOSORBIDE DINITRATE
     Dosage: 1 DF QD
     Dates: start: 20181213
  3. DOXAZOSIN [Concomitant]
     Active Substance: DOXAZOSIN\DOXAZOSIN MESYLATE
     Dosage: 1 DF QD
     Dates: start: 20181213
  4. HYDROCORTISONE. [Concomitant]
     Active Substance: HYDROCORTISONE
     Dosage: 2 DF QD,APPLY
     Dates: start: 20190418
  5. ACETYLSALICYLIC ACID [Concomitant]
     Active Substance: ASPIRIN
     Dosage: 1 DF QD ,MORNING.
     Dates: start: 20181213
  6. IBUPROFEN. [Concomitant]
     Active Substance: IBUPROFEN
     Dosage: 3 DF QD,AFTER FOOD.
     Dates: start: 20181213
  7. NYSTAN [Concomitant]
     Active Substance: NYSTATIN
     Dosage: 0.5 ML,EACH SIDE OF MOUTH FOR AT LEAST 14 DAYS
     Dates: start: 20190418
  8. CANDESARTAN. [Concomitant]
     Active Substance: CANDESARTAN
     Dosage: 1 DF QD
     Dates: start: 20181213
  9. COCODAMOL [Concomitant]
     Active Substance: ACETAMINOPHEN\CODEINE PHOSPHATE
     Dosage: 1 DF PRN ,TO BE TAKEN 4 TIMES A DAY.
     Dates: start: 20181213
  10. BENDROFLUMETHIAZIDE [Concomitant]
     Active Substance: BENDROFLUMETHIAZIDE
     Dosage: 1 DF QD ,MORNING.
     Dates: start: 20181213
  11. PREGABALIN. [Concomitant]
     Active Substance: PREGABALIN
     Dosage: 2 DF QD
     Dates: start: 20181213
  12. RIFAMPICIN [Suspect]
     Active Substance: RIFAMPIN
     Dosage: 150 MG
     Dates: start: 20190425
  13. VENTOLIN [Concomitant]
     Active Substance: ALBUTEROL SULFATE
     Dosage: 2 DF PRN
     Dates: start: 20181213
  14. OMEPRAZOLE. [Concomitant]
     Active Substance: OMEPRAZOLE
     Indication: GASTROINTESTINAL DISORDER PROPHYLAXIS
     Dosage: 1 DF QD
     Dates: start: 20181213
  15. LAXIDO [Concomitant]
     Active Substance: POLYETHYLENE GLYCOL 3350\POTASSIUM CHLORIDE\SODIUM BICARBONATE\SODIUM CHLORIDE
     Dosage: 1-2 DAILY AS DIRECTED.
     Dates: start: 20190214, end: 20190224
  16. DOCUSATE SODIUM. [Concomitant]
     Active Substance: DOCUSATE SODIUM
     Dosage: 3 DF QD
     Dates: start: 20190228, end: 20190310

REACTIONS (1)
  - Acute kidney injury [Recovering/Resolving]

NARRATIVE: CASE EVENT DATE: 20190425
